FAERS Safety Report 11996568 (Version 1)
Quarter: 2016Q1

REPORT INFORMATION
  Report Type: Spontaneous
  Country: US (occurrence: US)
  Receive Date: 20160203
  Receipt Date: 20160203
  Transmission Date: 20160526
  Serious: No
  Sender: FDA-Public Use
  Company Number: US-GALDERMA-US15006109

PATIENT
  Age: 18 Year
  Sex: Female

DRUGS (3)
  1. EPIDUO [Suspect]
     Active Substance: ADAPALENE\BENZOYL PEROXIDE
     Indication: ACNE
     Route: 061
     Dates: start: 20150702, end: 20150713
  2. CLEAR PROOF WITH 2% SALICYLIC ACID [Concomitant]
     Indication: THERAPEUTIC SKIN CARE TOPICAL
     Route: 061
  3. MINOCYCLINE [Suspect]
     Active Substance: MINOCYCLINE\MINOCYCLINE HYDROCHLORIDE
     Route: 048

REACTIONS (7)
  - Eyelids pruritus [Recovering/Resolving]
  - Eye swelling [Recovering/Resolving]
  - Rash papular [Recovering/Resolving]
  - Generalised erythema [Recovering/Resolving]
  - Eye pain [Recovered/Resolved]
  - Urticaria [Recovering/Resolving]
  - Pruritus [Recovering/Resolving]

NARRATIVE: CASE EVENT DATE: 20150713
